FAERS Safety Report 6773013-2 (Version None)
Quarter: 2010Q2

REPORT INFORMATION
  Report Type: 
  Country: None (occurrence: None)
  Receive Date: 20100616
  Receipt Date: 20100606
  Transmission Date: 20101027
  Serious: Yes (Other)
  Sender: FDA-Public Use
  Company Number: IL-PFIZER INC-2010070493

PATIENT
  Age: 52 Year
  Sex: Male

DRUGS (6)
  1. VFEND [Suspect]
     Dosage: 200 MG, 2X/DAY
     Dates: start: 20100323
  2. PREDNISONE [Concomitant]
     Dosage: 10 MG, 1X/DAY
  3. LOSEC I.V. [Concomitant]
     Dosage: 20 MG, 1X/DAY
  4. NORMALOL [Concomitant]
     Dosage: 25 MG, 1X/DAY
  5. CALCIUM WITH VITAMIN D [Concomitant]
  6. VITAMIN D [Concomitant]

REACTIONS (7)
  - ANXIETY [None]
  - BLISTER [None]
  - BURNING SENSATION [None]
  - NERVOUSNESS [None]
  - RESTLESSNESS [None]
  - VISION BLURRED [None]
  - VISUAL IMPAIRMENT [None]
